FAERS Safety Report 6589974-0 (Version None)
Quarter: 2010Q1

REPORT INFORMATION
  Report Type: 
  Country: None (occurrence: None)
  Receive Date: 20100219
  Receipt Date: 20100208
  Transmission Date: 20100710
  Serious: Yes (Hospitalization, Other)
  Sender: FDA-Public Use
  Company Number: PHHY2010BR06643

PATIENT
  Age: 75 Year
  Sex: Female

DRUGS (3)
  1. ACLASTA [Suspect]
     Indication: OSTEOPOROSIS
     Dosage: 5 MG/100 ML
     Dates: start: 20100128
  2. ACLASTA [Suspect]
     Dosage: UNK
     Route: 042
     Dates: start: 20100204
  3. CALCIUM [Concomitant]
     Dosage: UNK
     Dates: start: 20100128

REACTIONS (18)
  - BLOOD CALCIUM DECREASED [None]
  - BLOOD CALCIUM INCREASED [None]
  - COMA [None]
  - CONDITION AGGRAVATED [None]
  - CONFUSIONAL STATE [None]
  - DELIRIUM [None]
  - DEPRESSED LEVEL OF CONSCIOUSNESS [None]
  - DIARRHOEA [None]
  - DISORIENTATION [None]
  - ENDOTRACHEAL INTUBATION [None]
  - HEADACHE [None]
  - INFECTION [None]
  - INFLUENZA [None]
  - MALAISE [None]
  - MYALGIA [None]
  - PYREXIA [None]
  - URINARY TRACT INFECTION [None]
  - VOMITING [None]
